FAERS Safety Report 16847068 (Version 3)
Quarter: 2020Q2

REPORT INFORMATION
  Report Type: Report from Study
  Country: DE (occurrence: DE)
  Receive Date: 20190924
  Receipt Date: 20200511
  Transmission Date: 20200713
  Serious: Yes (Other)
  Sender: FDA-Public Use
  Company Number: PHHY2018DE023117

PATIENT
  Sex: Female
  Weight: 65 kg

DRUGS (16)
  1. COSENTYX [Suspect]
     Active Substance: SECUKINUMAB
     Indication: ANKYLOSING SPONDYLITIS
     Dosage: 150 MG, UNK
     Route: 065
     Dates: start: 20170712
  2. COSENTYX [Suspect]
     Active Substance: SECUKINUMAB
     Dosage: 150 MG, UNK
     Route: 065
     Dates: start: 20171004
  3. COSENTYX [Suspect]
     Active Substance: SECUKINUMAB
     Dosage: 300 MG,(PRE FILLED PEN)
     Route: 058
     Dates: start: 20171228
  4. CELEBREX [Concomitant]
     Active Substance: CELECOXIB
     Indication: ANKYLOSING SPONDYLITIS
     Dosage: 200 MG, BID (200MG-0-200MG DAILY)
     Route: 048
     Dates: start: 20121112
  5. COSENTYX [Suspect]
     Active Substance: SECUKINUMAB
     Dosage: 300 MG (PRE FILLED PEN)
     Route: 058
     Dates: start: 20171201
  6. COSENTYX [Suspect]
     Active Substance: SECUKINUMAB
     Dosage: 150 MG(PREFILLED PEN) , UNK
     Route: 065
     Dates: start: 20170809
  7. COSENTYX [Suspect]
     Active Substance: SECUKINUMAB
     Dosage: 300 MG(PRE FILLED PEN)
     Route: 058
     Dates: start: 20180129
  8. COSENTYX [Suspect]
     Active Substance: SECUKINUMAB
     Dosage: 150MG (PREFILLED PEN) , UNK
     Route: 065
     Dates: start: 20170726
  9. SERTRALINE [Concomitant]
     Active Substance: SERTRALINE HYDROCHLORIDE
     Indication: DEPRESSION
     Dosage: 100 MG, QD
     Route: 048
     Dates: start: 2013
  10. COSENTYX [Suspect]
     Active Substance: SECUKINUMAB
     Dosage: 300 MG, QMO
     Route: 058
     Dates: start: 20171024
  11. COSENTYX [Suspect]
     Active Substance: SECUKINUMAB
     Dosage: 300 MG, (PRE FILLED PEN)
     Route: 058
     Dates: start: 20171102
  12. COSENTYX [Suspect]
     Active Substance: SECUKINUMAB
     Dosage: 300 MG, (PRE FILLED PEN)
     Route: 058
     Dates: start: 20180228, end: 20190330
  13. COSENTYX [Suspect]
     Active Substance: SECUKINUMAB
     Dosage: 150MG (PREFILLED PEN) , UNK
     Route: 065
     Dates: start: 20170719
  14. NOVAMINSULFON [Concomitant]
     Active Substance: METAMIZOLE
     Indication: PAIN
     Dosage: 30 GTT, TID AS NEEDED
     Route: 048
     Dates: start: 20140714
  15. COSENTYX [Suspect]
     Active Substance: SECUKINUMAB
     Dosage: 150MG (PREFILLED PEN) , UNK
     Route: 065
     Dates: start: 20170802
  16. COSENTYX [Suspect]
     Active Substance: SECUKINUMAB
     Dosage: 150 MG (PREFILLED PEN) , UNK
     Route: 065
     Dates: start: 20170905

REACTIONS (4)
  - Otitis media [Recovered/Resolved]
  - Tonsillitis [Recovered/Resolved]
  - Psoriasis [Recovered/Resolved]
  - Psoriatic arthropathy [Recovered/Resolved]

NARRATIVE: CASE EVENT DATE: 20171024
